FAERS Safety Report 22131318 (Version 1)
Quarter: 2023Q1

REPORT INFORMATION
  Report Type: Spontaneous
  Country: US (occurrence: US)
  Receive Date: 20230323
  Receipt Date: 20230323
  Transmission Date: 20230417
  Serious: No
  Sender: FDA-Public Use
  Company Number: US-ABBVIE-4317353

PATIENT
  Sex: Female

DRUGS (1)
  1. HUMIRA [Suspect]
     Active Substance: ADALIMUMAB
     Indication: Psoriasis
     Route: 058

REACTIONS (6)
  - Dyspnoea [Unknown]
  - Painful respiration [Unknown]
  - Mobility decreased [Unknown]
  - Inflammation [Unknown]
  - Chest pain [Unknown]
  - Hypopnoea [Unknown]
